FAERS Safety Report 17754582 (Version 2)
Quarter: 2020Q2

REPORT INFORMATION
  Report Type: Spontaneous
  Country: HR (occurrence: HR)
  Receive Date: 20200507
  Receipt Date: 20200529
  Transmission Date: 20200714
  Serious: Yes (Death, Congenital Anomaly, Other)
  Sender: FDA-Public Use
  Company Number: HR-AMGEN-HRVSP2020073942

PATIENT
  Age: 20 Year
  Sex: Female

DRUGS (1)
  1. AIMOVIG [Suspect]
     Active Substance: ERENUMAB-AOOE
     Indication: FOETAL EXPOSURE DURING PREGNANCY
     Dosage: MATERNAL DOSE: 1 OT, QMO
     Route: 064
     Dates: start: 20191117, end: 20200117

REACTIONS (5)
  - Neonatal cardiac failure [Fatal]
  - Neonatal respiratory acidosis [Fatal]
  - Foetal exposure during pregnancy [Unknown]
  - Newborn persistent pulmonary hypertension [Fatal]
  - Congenital diaphragmatic hernia [Fatal]

NARRATIVE: CASE EVENT DATE: 20191117
